FAERS Safety Report 9535629 (Version 3)
Quarter: 2015Q4

REPORT INFORMATION
  Report Type: Report from Study
  Country: BR (occurrence: BR)
  Receive Date: 20130919
  Receipt Date: 20151203
  Transmission Date: 20160305
  Serious: Yes (Hospitalization, Other)
  Sender: FDA-Public Use
  Company Number: BR-ROCHE-1277822

PATIENT
  Sex: Female
  Weight: 75 kg

DRUGS (8)
  1. GLIMEPIRIDE. [Concomitant]
     Active Substance: GLIMEPIRIDE
  2. SUMATRIPTAN. [Concomitant]
     Active Substance: SUMATRIPTAN
  3. METFORMIN [Concomitant]
     Active Substance: METFORMIN HYDROCHLORIDE
     Route: 065
  4. ATORVASTATIN [Concomitant]
     Active Substance: ATORVASTATIN
  5. XOLAIR [Suspect]
     Active Substance: OMALIZUMAB
     Indication: LUNG DISORDER
     Dosage: A LAST APPLICATION OF OMALIZUMAB ON 16 AUG 2013; DOSE: 150 MG SUBCUTANEOUSLY OR ANOTHER THING AND FO
     Route: 058
     Dates: start: 2011
  6. NEXIAM [Concomitant]
     Active Substance: ESOMEPRAZOLE
  7. XOLAIR [Suspect]
     Active Substance: OMALIZUMAB
     Indication: HYPERSENSITIVITY
     Dosage: 1 AMPOULE, HALF IN EACH ARM
     Route: 065
  8. DIGESAN [Concomitant]
     Active Substance: BROMOPRIDE

REACTIONS (4)
  - Pleural effusion [Recovering/Resolving]
  - Pneumonia [Recovering/Resolving]
  - Anaemia [Recovering/Resolving]
  - Haemorrhage [Recovering/Resolving]
